FAERS Safety Report 4840138-8 (Version None)
Quarter: 2005Q4

REPORT INFORMATION
  Report Type: 
  Country: None (occurrence: None)
  Receive Date: 20051125
  Receipt Date: 20051110
  Transmission Date: 20060501
  Serious: Yes (Other)
  Sender: FDA-Public Use
  Company Number: 2005154342

PATIENT
  Age: 13 Month
  Sex: Female
  Weight: 9.0719 kg

DRUGS (1)
  1. INFANT'S PEDIACARE DECONGESTANT AND COUGH DROPS (PSEUDOEPHEDRINE,  DEX [Suspect]
     Indication: ACCIDENTAL EXPOSURE
     Dosage: ABOUT HALF THE BOTTLE ONCE, ORAL
     Route: 048
     Dates: start: 20051110, end: 20051110

REACTIONS (3)
  - ACCIDENTAL DRUG INTAKE BY CHILD [None]
  - HYPERHIDROSIS [None]
  - VOMITING [None]
